FAERS Safety Report 23548172 (Version 1)
Quarter: 2024Q1

REPORT INFORMATION
  Report Type: Spontaneous
  Country: US (occurrence: None)
  Receive Date: 20240219
  Receipt Date: 20240219
  Transmission Date: 20240410
  Serious: Yes (Hospitalization)
  Sender: FDA-Public Use
  Company Number: None

PATIENT
  Age: 28 Year
  Sex: Female
  Weight: 61.23 kg

DRUGS (1)
  1. NEXPLANON [Suspect]
     Active Substance: ETONOGESTREL

REACTIONS (6)
  - Iatrogenic injury [None]
  - Device monitoring procedure not performed [None]
  - Post procedural complication [None]
  - Device dislocation [None]
  - Traumatic lung injury [None]
  - Embedded device [None]

NARRATIVE: CASE EVENT DATE: 20211117
